FAERS Safety Report 4490666-2 (Version None)
Quarter: 2004Q4

REPORT INFORMATION
  Report Type: 
  Country: None (occurrence: None)
  Receive Date: 20041102
  Receipt Date: 20040902
  Transmission Date: 20050328
  Serious: Yes (Hospitalization)
  Sender: FDA-Public Use
  Company Number: US-GLAXOSMITHKLINE-A0524516A

PATIENT
  Age: 36 Year
  Sex: Female

DRUGS (2)
  1. WELLBUTRIN [Suspect]
     Indication: DEPRESSION
     Route: 048
  2. ALCOHOL [Concomitant]

REACTIONS (9)
  - AGITATION [None]
  - ALCOHOL INTOLERANCE [None]
  - AMNESIA [None]
  - CONVULSION [None]
  - DISSOCIATION [None]
  - DRUG INEFFECTIVE [None]
  - OVERDOSE [None]
  - SUICIDAL IDEATION [None]
  - VISION BLURRED [None]
